FAERS Safety Report 8474111 (Version 2)
Quarter: 2012Q4

REPORT INFORMATION
  Report Type: 
  Country: JP (occurrence: JP)
  Receive Date: 20120323
  Receipt Date: 20121012
  Transmission Date: 20130627
  Serious: Yes (Hospitalization, Other)
  Sender: FDA-Public Use
  Company Number: JP-SANOFI-AVENTIS-2012SA004516

PATIENT
  Age: 74 Year
  Sex: Male
  Weight: 47.6 kg

DRUGS (3)
  1. TAXOTERE [Suspect]
     Indication: NON-SMALL CELL LUNG CANCER
     Route: 042
     Dates: start: 20111018
  2. CISPLATIN [Suspect]
     Indication: NON-SMALL CELL LUNG CANCER
     Route: 065
     Dates: start: 20111018
  3. THERAPEUTIC RADIOPHARMACEUTICALS [Concomitant]
     Indication: NON-SMALL CELL LUNG CANCER
     Dosage: 2 GyX 35 times; total dose: 70 Gy

REACTIONS (14)
  - Thrombotic microangiopathy [Not Recovered/Not Resolved]
  - Henoch-Schonlein purpura [Unknown]
  - Nephrotic syndrome [Unknown]
  - Oedema peripheral [Unknown]
  - Delirium [Unknown]
  - Oliguria [Unknown]
  - Hypertension [Unknown]
  - Pyrexia [Unknown]
  - Rash [Unknown]
  - Decreased appetite [Not Recovered/Not Resolved]
  - Weight increased [Not Recovered/Not Resolved]
  - Renal disorder [Unknown]
  - Febrile neutropenia [Unknown]
  - Anaemia [Unknown]
